FAERS Safety Report 7122535-3 (Version None)
Quarter: 2010Q4

REPORT INFORMATION
  Report Type: 
  Country: None (occurrence: None)
  Receive Date: 20101112
  Receipt Date: 20101108
  Transmission Date: 20110411
  Serious: Yes (Hospitalization)
  Sender: FDA-Public Use
  Company Number: 2010SP056006

PATIENT
  Age: 58 Year
  Sex: Male

DRUGS (5)
  1. PEGINTERFERON ALFA-2B [Suspect]
     Indication: HEPATITIS C
     Dosage: 100 MCG;SC
     Route: 058
     Dates: start: 20100510, end: 20100603
  2. PEGINTERFERON ALFA-2B [Suspect]
     Indication: HEPATITIS C
     Dosage: 100 MCG;SC
     Route: 058
     Dates: start: 20100129
  3. RIBAVIRIN [Suspect]
     Indication: HEPATITIS C
     Dosage: 1000 MG;QD;PO
     Route: 048
     Dates: start: 20100129, end: 20101007
  4. ELTROMBOPAG (ELTROMBOPAG) [Suspect]
     Indication: THROMBOCYTOPENIA
     Dosage: 25 MG;QD;PO
     Route: 048
     Dates: start: 20100115, end: 20100129
  5. BLINDED ELTROMBOPAG (ELTROMBOPAG) [Suspect]
     Indication: THROMBOCYTOPENIA
     Dates: start: 20100130, end: 20101007

REACTIONS (4)
  - ABDOMINAL PAIN UPPER [None]
  - CHILLS [None]
  - CHOLECYSTITIS [None]
  - SPLENOMEGALY [None]
